FAERS Safety Report 15006034 (Version 1)
Quarter: 2018Q2

REPORT INFORMATION
  Report Type: Spontaneous
  Country: FR (occurrence: FR)
  Receive Date: 20180613
  Receipt Date: 20180613
  Transmission Date: 20180711
  Serious: Yes (Death)
  Sender: FDA-Public Use
  Company Number: FR-JNJFOC-20180611656

PATIENT
  Age: 83 Year
  Sex: Male
  Weight: 85 kg

DRUGS (1)
  1. XARELTO [Suspect]
     Active Substance: RIVAROXABAN
     Indication: ATRIAL FIBRILLATION
     Route: 048
     Dates: end: 20180430

REACTIONS (2)
  - Anaemia [Fatal]
  - Procedural haemorrhage [Fatal]

NARRATIVE: CASE EVENT DATE: 20180430
